FAERS Safety Report 5743660-5 (Version None)
Quarter: 2008Q2

REPORT INFORMATION
  Report Type: 
  Country: None (occurrence: None)
  Receive Date: 20080520
  Receipt Date: 20080512
  Transmission Date: 20081010
  Serious: Yes (Other)
  Sender: FDA-Public Use
  Company Number: PHEH2008US04093

PATIENT
  Age: 55 Year
  Sex: Male

DRUGS (4)
  1. DEXAMETHASONE TAB [Concomitant]
     Dosage: 40 MG, D1-4 Q28DAYS
     Route: 048
     Dates: start: 20060128, end: 20070420
  2. THALIDOMIDE [Concomitant]
     Dosage: 100 MG, QD
     Route: 048
     Dates: start: 20061128, end: 20070828
  3. VELCADE [Concomitant]
     Dosage: 2.5 MG, DAYS 1,4,8,11 Q28DAYS
     Route: 042
     Dates: start: 20070102, end: 20070422
  4. ZOMETA [Suspect]
     Indication: METASTASES TO BONE
     Dosage: 3-4MG, QMONTH
     Route: 042
     Dates: start: 20070130, end: 20071217

REACTIONS (7)
  - BACTERIAL INFECTION [None]
  - BONE DISORDER [None]
  - BONE LESION [None]
  - GINGIVITIS [None]
  - MOUTH ULCERATION [None]
  - OSTEONECROSIS [None]
  - PAIN IN JAW [None]
